FAERS Safety Report 7465536-8 (Version None)
Quarter: 2011Q2

REPORT INFORMATION
  Report Type: 
  Country: None (occurrence: None)
  Receive Date: 20110509
  Receipt Date: 20110429
  Transmission Date: 20111010
  Serious: Yes (Other)
  Sender: FDA-Public Use
  Company Number: AU-ROCHE-774325

PATIENT
  Sex: Female

DRUGS (4)
  1. MIRCERA [Suspect]
     Route: 065
  2. MIRCERA [Suspect]
     Route: 065
  3. MIRCERA [Suspect]
     Route: 065
  4. MIRCERA [Suspect]
     Dosage: RECOMMENDED A DOSE OF 200 MCG
     Route: 065
     Dates: start: 20110428

REACTIONS (1)
  - MYELODYSPLASTIC SYNDROME [None]
